FAERS Safety Report 8032991-4 (Version None)
Quarter: 2011Q4

REPORT INFORMATION
  Report Type: 
  Country: None (occurrence: None)
  Receive Date: 20111223
  Receipt Date: 20111214
  Transmission Date: 20120403
  Serious: Yes (Death, Other)
  Sender: FDA-Public Use
  Company Number: 2011SP058454

PATIENT
  Age: 43 Year
  Sex: Female

DRUGS (1)
  1. TEMOZOLOMIDE [Suspect]
     Indication: PRODUCT USED FOR UNKNOWN INDICATION
     Dates: start: 20070201, end: 20100601

REACTIONS (3)
  - GLIOSARCOMA [None]
  - THROMBOCYTOPENIA [None]
  - LEUKOPENIA [None]
